FAERS Safety Report 24750810 (Version 7)
Quarter: 2025Q2

REPORT INFORMATION
  Report Type: Spontaneous
  Country: JP (occurrence: JP)
  Receive Date: 20241219
  Receipt Date: 20250529
  Transmission Date: 20250716
  Serious: Yes (Life-Threatening, Hospitalization, Other)
  Sender: ASTELLAS
  Company Number: JP-ASTELLAS-2024-AER-025214

PATIENT
  Age: 4 Year
  Sex: Male
  Weight: 16 kg

DRUGS (6)
  1. PROGRAF [Suspect]
     Active Substance: TACROLIMUS
     Indication: Immunosuppressant drug therapy
     Route: 050
     Dates: start: 20240131
  2. URSODIOL [Concomitant]
     Active Substance: URSODIOL
     Indication: Product used for unknown indication
     Route: 048
  3. AMMONIUM GLYCYRRHIZATE [Concomitant]
     Active Substance: AMMONIUM GLYCYRRHIZATE
     Indication: Product used for unknown indication
     Route: 048
  4. MYCOPHENOLATE MOFETIL [Concomitant]
     Active Substance: MYCOPHENOLATE MOFETIL
     Indication: Product used for unknown indication
     Route: 048
  5. SULFAMETHOXAZOLE\TRIMETHOPRIM [Concomitant]
     Active Substance: SULFAMETHOXAZOLE\TRIMETHOPRIM
     Indication: Product used for unknown indication
     Route: 048
  6. PREDNISOLONE [Concomitant]
     Active Substance: PREDNISOLONE
     Indication: Product used for unknown indication
     Route: 065

REACTIONS (4)
  - Hypoxia [Recovered/Resolved]
  - Vasoconstriction [Recovered/Resolved]
  - Drug level increased [Recovered/Resolved]
  - Off label use [Unknown]

NARRATIVE: CASE EVENT DATE: 20240201
